FAERS Safety Report 23763508 (Version 2)
Quarter: 2024Q2

REPORT INFORMATION
  Report Type: Spontaneous
  Country: US (occurrence: US)
  Receive Date: 20240419
  Receipt Date: 20240613
  Transmission Date: 20240716
  Serious: No
  Sender: FDA-Public Use
  Company Number: US-JNJFOC-20240436298

PATIENT
  Age: 75 Year
  Sex: Female

DRUGS (9)
  1. WOMENS ROGAINE UNSCENTED [Suspect]
     Active Substance: MINOXIDIL
     Indication: Alopecia
     Dosage: PRODUCT START DATE OVER A MONTH AGO
     Route: 061
     Dates: start: 2024
  2. MINOXIDIL [Concomitant]
     Active Substance: MINOXIDIL
     Indication: Alopecia
     Dosage: OVER A MONTH AGO, PRODUCT DOSE: WHERE THE MARK IS ON THE DROPPER
     Route: 061
     Dates: start: 2024
  3. MINOXIDIL [Concomitant]
     Active Substance: MINOXIDIL
     Route: 061
     Dates: start: 2024
  4. ERGOCALCIFEROL [Concomitant]
     Active Substance: ERGOCALCIFEROL
     Indication: Product used for unknown indication
     Route: 065
  5. VITAMIN C [Concomitant]
     Active Substance: ASCORBIC ACID
     Indication: Product used for unknown indication
     Route: 065
  6. IRON [Concomitant]
     Active Substance: IRON
     Indication: Product used for unknown indication
     Route: 065
  7. FOLIC ACID [Concomitant]
     Active Substance: FOLIC ACID
     Indication: Product used for unknown indication
     Route: 065
  8. BIOTIN [Concomitant]
     Active Substance: BIOTIN
     Indication: Product used for unknown indication
     Route: 065
  9. FISH OIL [Concomitant]
     Active Substance: FISH OIL
     Indication: Product used for unknown indication
     Route: 065

REACTIONS (4)
  - Product use in unapproved indication [Unknown]
  - Product container issue [Unknown]
  - Application site rash [Unknown]
  - Hair colour changes [Unknown]

NARRATIVE: CASE EVENT DATE: 20240101
